FAERS Safety Report 4850717-X (Version None)
Quarter: 2005Q4

REPORT INFORMATION
  Report Type: 
  Country: None (occurrence: None)
  Receive Date: 20051208
  Receipt Date: 20051202
  Transmission Date: 20060501
  Serious: Yes (Other)
  Sender: FDA-Public Use
  Company Number: 2005S1000337

PATIENT
  Sex: Female

DRUGS (1)
  1. SORIATANE [Suspect]
     Indication: LICHEN PLANUS
     Dosage: 10 MG;QD;PO
     Route: 048
     Dates: start: 20050901

REACTIONS (1)
  - RENAL FAILURE ACUTE [None]
